FAERS Safety Report 6822641-4 (Version None)
Quarter: 2010Q3

REPORT INFORMATION
  Report Type: 
  Country: None (occurrence: None)
  Receive Date: 20100706
  Receipt Date: 20100706
  Transmission Date: 20110219
  Serious: Yes (Other)
  Sender: FDA-Public Use
  Company Number: None

PATIENT
  Age: 53 Year
  Sex: Male
  Weight: 63.5036 kg

DRUGS (2)
  1. ACTONEL [Suspect]
     Indication: OSTEOPENIA
     Dosage: 150 MG ONCE PER MONTH PO
     Route: 048
     Dates: start: 20100701, end: 20100701
  2. ADVAIR DISKUS 100/50 [Concomitant]

REACTIONS (13)
  - ARTHRALGIA [None]
  - CHEST PAIN [None]
  - DYSPHAGIA [None]
  - DYSPNOEA [None]
  - GAIT DISTURBANCE [None]
  - GROIN PAIN [None]
  - MUSCULOSKELETAL STIFFNESS [None]
  - MYALGIA [None]
  - OESOPHAGEAL DISORDER [None]
  - ORAL DISORDER [None]
  - PAIN IN JAW [None]
  - SENSATION OF PRESSURE [None]
  - THROAT IRRITATION [None]
